FAERS Safety Report 20658562 (Version 5)
Quarter: 2022Q4

REPORT INFORMATION
  Report Type: Report from Study
  Country: US (occurrence: US)
  Receive Date: 20220331
  Receipt Date: 20221028
  Transmission Date: 20230112
  Serious: No
  Sender: FDA-Public Use
  Company Number: US-NOVARTISTESTPH-NVSC2022US072152

PATIENT
  Age: 74 Year
  Sex: Male

DRUGS (2)
  1. ENTRESTO [Suspect]
     Active Substance: SACUBITRIL\VALSARTAN
     Indication: Product used for unknown indication
     Dosage: 0.5 DOSAGE FORM, BID (50 MG: 24/26 MG: SACUBITRIL 24.3 MG, VALSARTAN 25.7 MG, 1/2 TABLET)
     Route: 048
     Dates: start: 20220329
  2. ENTRESTO [Suspect]
     Active Substance: SACUBITRIL\VALSARTAN
     Dosage: 0.5 DOSAGE FORM, BID (50 MG: 24/26 MG: SACUBITRIL 24.3 MG, VALSARTAN 25.7 MG, 1/2 TABLET)
     Route: 048
     Dates: start: 20220331, end: 20221013

REACTIONS (2)
  - Wrong technique in product usage process [Unknown]
  - Off label use [Unknown]

NARRATIVE: CASE EVENT DATE: 20220329
